FAERS Safety Report 18707197 (Version 2)
Quarter: 2022Q4

REPORT INFORMATION
  Report Type: Spontaneous
  Country: US (occurrence: US)
  Receive Date: 20210106
  Receipt Date: 20221116
  Transmission Date: 20230112
  Serious: No
  Sender: FDA-Public Use
  Company Number: US-OPTINOSE US, INC-2020OPT000745

PATIENT
  Age: 58 Year
  Sex: Female

DRUGS (4)
  1. XHANCE [Suspect]
     Active Substance: FLUTICASONE PROPIONATE
     Indication: Sinus disorder
     Route: 045
     Dates: start: 202010
  2. XHANCE [Suspect]
     Active Substance: FLUTICASONE PROPIONATE
     Indication: Nasal polyps
     Route: 045
     Dates: start: 20201028
  3. XHANCE [Suspect]
     Active Substance: FLUTICASONE PROPIONATE
     Indication: Eosinophilia
     Route: 045
     Dates: start: 2020, end: 202109
  4. XHANCE [Suspect]
     Active Substance: FLUTICASONE PROPIONATE
     Route: 045
     Dates: start: 2021

REACTIONS (6)
  - Pseudomonas infection [Recovered/Resolved]
  - Sinusitis bacterial [Recovered/Resolved]
  - Dizziness postural [Recovered/Resolved]
  - Sinusitis fungal [Recovered/Resolved]
  - Headache [Recovered/Resolved]
  - Device use error [Unknown]

NARRATIVE: CASE EVENT DATE: 20210101
